FAERS Safety Report 22294524 (Version 1)
Quarter: 2023Q2

REPORT INFORMATION
  Report Type: Spontaneous
  Country: US (occurrence: US)
  Receive Date: 20230508
  Receipt Date: 20230508
  Transmission Date: 20230722
  Serious: No
  Sender: FDA-Public Use
  Company Number: US-ASTELLAS-2022US031103

PATIENT
  Age: 89 Year
  Sex: Female

DRUGS (4)
  1. LEXISCAN [Suspect]
     Active Substance: REGADENOSON
     Indication: Cardiac stress test
     Dosage: 0.4MG/5ML, UNKNOWN FREQ. (ONE SYRINGE AT A RATE OF 10-12SEC)
     Route: 042
     Dates: start: 20220825, end: 20220825
  2. LEXISCAN [Suspect]
     Active Substance: REGADENOSON
     Indication: Cardiac stress test
     Dosage: 0.4MG/5ML, UNKNOWN FREQ. (ONE SYRINGE AT A RATE OF 10-12SEC)
     Route: 042
     Dates: start: 20220825, end: 20220825
  3. LEXISCAN [Suspect]
     Active Substance: REGADENOSON
     Indication: Cardiac stress test
     Dosage: 0.4MG/5ML, UNKNOWN FREQ. (ONE SYRINGE AT A RATE OF 10-12SEC)
     Route: 042
     Dates: start: 20220825, end: 20220825
  4. LEXISCAN [Suspect]
     Active Substance: REGADENOSON
     Indication: Cardiac stress test
     Dosage: 0.4MG/5ML, UNKNOWN FREQ. (ONE SYRINGE AT A RATE OF 10-12SEC)
     Route: 042
     Dates: start: 20220825, end: 20220825

REACTIONS (6)
  - Dyskinesia [Recovered/Resolved]
  - Muscle twitching [Recovered/Resolved]
  - Dyspnoea [Recovered/Resolved]
  - Pain in extremity [Recovered/Resolved]
  - Fatigue [Recovered/Resolved]
  - Incorrect product administration duration [Unknown]

NARRATIVE: CASE EVENT DATE: 20220825
